FAERS Safety Report 8725725 (Version 2)
Quarter: 2012Q4

REPORT INFORMATION
  Report Type: Report from Study
  Country: JP (occurrence: JP)
  Receive Date: 20120815
  Receipt Date: 20121113
  Transmission Date: 20130627
  Serious: No
  Sender: FDA-Public Use
  Company Number: JP-009507513-1208JPN006219

PATIENT
  Age: 50 Year
  Sex: Female
  Weight: 76 kg

DRUGS (8)
  1. TEMODAL [Suspect]
     Indication: ANAPLASTIC ASTROCYTOMA
     Dosage: 75 mg, qd
     Route: 048
     Dates: start: 20100720, end: 20100819
  2. BAKTAR [Concomitant]
     Indication: ANTIFUNGAL PROPHYLAXIS
     Dosage: Daily dosage unknown
     Route: 048
     Dates: start: 20100720, end: 20100819
  3. DEPAKENE [Concomitant]
     Dosage: Daily dosage unknown
     Route: 048
     Dates: start: 20100629
  4. ALEVIATIN [Concomitant]
     Dosage: Daily dosage unknown
     Route: 048
     Dates: start: 20100629
  5. MERCAZOLE [Concomitant]
     Dosage: Daily dosage unknown
     Route: 048
  6. GASTER [Concomitant]
     Dosage: Daily dosage unknown
     Route: 048
     Dates: start: 20100629
  7. NORVASC [Concomitant]
     Dosage: Daily dosage unknown
     Route: 048
     Dates: start: 20100629
  8. NASEA [Concomitant]
     Indication: PROPHYLAXIS
     Dosage: Daily dosage unknown
     Route: 048
     Dates: start: 20100720, end: 20100819

REACTIONS (3)
  - Meningitis viral [Recovered/Resolved]
  - White blood cell count decreased [Recovered/Resolved]
  - Tremor [Recovering/Resolving]
